FAERS Safety Report 7558928-X (Version None)
Quarter: 2011Q2

REPORT INFORMATION
  Report Type: 
  Country: None (occurrence: None)
  Receive Date: 20110621
  Receipt Date: 20110610
  Transmission Date: 20111010
  Serious: No
  Sender: FDA-Public Use
  Company Number: PHHO2011NL09058

PATIENT
  Sex: Female
  Weight: 63.8 kg

DRUGS (2)
  1. LETROZOLE [Suspect]
     Dosage: 2.5 MG, DAILY
     Route: 048
     Dates: start: 20110520
  2. LETROZOLE [Suspect]
     Indication: BREAST CANCER
     Dosage: 2.5 MG, DAILY
     Route: 048
     Dates: start: 20091112, end: 20110329

REACTIONS (1)
  - DRUG ADMINISTRATION ERROR [None]
